FAERS Safety Report 15273943 (Version 2)
Quarter: 2018Q4

REPORT INFORMATION
  Report Type: Report from Study
  Country: None (occurrence: US)
  Receive Date: 20180814
  Receipt Date: 20181003
  Transmission Date: 20190204
  Serious: Yes (Hospitalization)
  Sender: FDA-Public Use
  Company Number: US-ABBVIE-17K-163-2049347-00

PATIENT
  Sex: Female

DRUGS (3)
  1. HUMIRA [Suspect]
     Active Substance: ADALIMUMAB
     Route: 058
     Dates: start: 20170720, end: 2017
  2. HUMIRA [Suspect]
     Active Substance: ADALIMUMAB
     Indication: CROHN^S DISEASE
     Dosage: 2 MISSED DOSES IN JUL 2017 DUE TO TRAVELLING
     Route: 058
     Dates: start: 201702, end: 2017
  3. HUMIRA [Suspect]
     Active Substance: ADALIMUMAB
     Route: 058
     Dates: start: 201709, end: 20180628

REACTIONS (10)
  - Crohn^s disease [Recovered/Resolved]
  - Drug ineffective [Recovering/Resolving]
  - Fatigue [Not Recovered/Not Resolved]
  - Renal impairment [Recovered/Resolved]
  - Intentional dose omission [Recovered/Resolved]
  - Procedural hypertension [Recovered/Resolved]
  - Rash erythematous [Not Recovered/Not Resolved]
  - Intestinal stenosis [Recovering/Resolving]
  - Crohn^s disease [Recovering/Resolving]
  - Rash pruritic [Not Recovered/Not Resolved]

NARRATIVE: CASE EVENT DATE: 2017
